FAERS Safety Report 20526361 (Version 2)
Quarter: 2022Q1

REPORT INFORMATION
  Report Type: Spontaneous
  Country: RO (occurrence: RO)
  Receive Date: 20220228
  Receipt Date: 20220309
  Transmission Date: 20220423
  Serious: Yes (Death, Other)
  Sender: FDA-Public Use
  Company Number: RO-TEVA-2022-RO-2005171

PATIENT
  Age: 67 Year
  Sex: Male

DRUGS (11)
  1. METHYLPREDNISOLONE [Suspect]
     Active Substance: METHYLPREDNISOLONE
     Indication: IgA nephropathy
     Dosage: DAILY; PULSE THERAPY; AS A PART OF INDUCTION THERAPY
     Route: 065
  2. METHYLPREDNISOLONE [Suspect]
     Active Substance: METHYLPREDNISOLONE
     Indication: Antineutrophil cytoplasmic antibody positive
     Dosage: UNK
  3. AZATHIOPRINE [Suspect]
     Active Substance: AZATHIOPRINE
     Indication: Antineutrophil cytoplasmic antibody positive
  4. AZATHIOPRINE [Suspect]
     Active Substance: AZATHIOPRINE
     Indication: IgA nephropathy
     Dosage: 2 MG/KG DAILY; USED AS MAINTENANCE THERAPY FOR AT LEAST 12 MONTHS AFTER REMISSION.
     Route: 065
  5. CYCLOPHOSPHAMIDE [Suspect]
     Active Substance: CYCLOPHOSPHAMIDE
     Indication: IgA nephropathy
     Dosage: 500 MG/M2 EVERY 4 WEEKS; AS A PART OF INDUCTION THERAPY
     Route: 065
  6. CYCLOPHOSPHAMIDE [Suspect]
     Active Substance: CYCLOPHOSPHAMIDE
     Indication: Antineutrophil cytoplasmic antibody positive
  7. PREDNISONE [Suspect]
     Active Substance: PREDNISONE
     Indication: Antineutrophil cytoplasmic antibody positive
     Dosage: 0.25 MG/KG, DAILY; BY 1 MONTH; AS A PART OF INDUCTION THERAPY
     Route: 048
  8. PREDNISONE [Suspect]
     Active Substance: PREDNISONE
     Dosage: 10 MG DAILY; AT 4 MONTH; AS A PART OF INDUCTION THERAPY
     Route: 048
  9. PREDNISONE [Suspect]
     Active Substance: PREDNISONE
     Indication: IgA nephropathy
     Dosage: INITIAL DOSE; AS A PART OF INDUCTION THERAPY
     Route: 048
  10. PREDNISONE [Suspect]
     Active Substance: PREDNISONE
     Dosage: 15 MG, 1X/DAY; AT 3 MONTH; AS A PART OF INDUCTION THERAPY
     Route: 048
  11. PREDNISONE [Suspect]
     Active Substance: PREDNISONE
     Dosage: 5 MG DAILY; FROM 5 TO 12 MONTH; AS A PART OF INDUCTION THERAPY
     Route: 048

REACTIONS (3)
  - Septic shock [Fatal]
  - Pneumonia pseudomonal [Fatal]
  - Renal vasculitis [Unknown]
